FAERS Safety Report 5262799-4 (Version None)
Quarter: 2007Q1

REPORT INFORMATION
  Report Type: 
  Country: None (occurrence: None)
  Receive Date: 20070312
  Receipt Date: 20070302
  Transmission Date: 20070707
  Serious: Yes (Other)
  Sender: FDA-Public Use
  Company Number: AU-GLAXOSMITHKLINE-B0460535A

PATIENT
  Age: 25 Year
  Sex: Female

DRUGS (3)
  1. ZOFRAN [Suspect]
     Indication: NAUSEA
     Route: 065
  2. MAXOLON [Concomitant]
     Route: 065
  3. WINE [Concomitant]
     Route: 048

REACTIONS (7)
  - AGGRESSION [None]
  - AGITATION [None]
  - EXTRAPYRAMIDAL DISORDER [None]
  - FACIAL PALSY [None]
  - JOINT DISLOCATION [None]
  - LOSS OF CONSCIOUSNESS [None]
  - VISUAL DISTURBANCE [None]
